FAERS Safety Report 18355456 (Version 1)
Quarter: 2020Q4

REPORT INFORMATION
  Report Type: Spontaneous
  Country: US (occurrence: US)
  Receive Date: 20201006
  Receipt Date: 20201006
  Transmission Date: 20210114
  Serious: Yes (Hospitalization)
  Sender: FDA-Public Use
  Company Number: None

PATIENT
  Age: 73 Year
  Sex: Male
  Weight: 91.63 kg

DRUGS (1)
  1. NIVOLUMAB (NIVOLUMAB 10MG/ML INJ, SOLN) [Suspect]
     Active Substance: NIVOLUMAB
     Indication: PROSTATE CANCER
     Route: 042
     Dates: start: 20180109, end: 20191217

REACTIONS (4)
  - Nausea [None]
  - Vomiting [None]
  - Oesophagitis [None]
  - Weight decreased [None]

NARRATIVE: CASE EVENT DATE: 20200102
